FAERS Safety Report 4315197-1 (Version None)
Quarter: 2004Q1

REPORT INFORMATION
  Report Type: 
  Country: None (occurrence: None)
  Receive Date: 20040310
  Receipt Date: 20040225
  Transmission Date: 20041129
  Serious: Yes (Other)
  Sender: FDA-Public Use
  Company Number: US-JNJFOC-20040206219

PATIENT
  Age: 60 Year
  Sex: Female

DRUGS (11)
  1. INFLIXIMAB (INFLIXIMAB, RECOMBINANT) LYOPHILIZED POWDER [Suspect]
     Indication: RHEUMATOID ARTHRITIS
     Dosage: INTRAVENOUS
     Route: 042
     Dates: start: 20020116, end: 20030616
  2. METHOTREXATE [Concomitant]
  3. RELPAX (ELETRIPTAN HYDROBROMIDE) [Concomitant]
  4. PREDNISONE [Concomitant]
  5. TOPAMAX [Concomitant]
  6. SALSALATE (SALSALATE) [Concomitant]
  7. FLEXERIL [Concomitant]
  8. DYAZIDE [Concomitant]
  9. SYNTHROID [Concomitant]
  10. FOLIC ACID [Concomitant]
  11. IMITREX [Concomitant]

REACTIONS (1)
  - ATELECTASIS [None]
